FAERS Safety Report 5188513-9 (Version None)
Quarter: 2006Q4

REPORT INFORMATION
  Report Type: 
  Country: None (occurrence: None)
  Receive Date: 20061221
  Receipt Date: 20061107
  Transmission Date: 20070319
  Serious: Yes (Other)
  Sender: FDA-Public Use
  Company Number: DE-JNJFOC-20061205241

PATIENT
  Age: 76 Year
  Sex: Male

DRUGS (2)
  1. IBUPROFEN [Suspect]
     Dosage: 800-1200MG DAILY
  2. IBUPROFEN [Suspect]
     Indication: ARTHROPATHY

REACTIONS (2)
  - AMNESIA [None]
  - CONFUSIONAL STATE [None]
